FAERS Safety Report 7640921-X (Version None)
Quarter: 2011Q3

REPORT INFORMATION
  Report Type: 
  Country: None (occurrence: None)
  Receive Date: 20110727
  Receipt Date: 20110727
  Transmission Date: 20111222
  Serious: Yes (Disabling)
  Sender: FDA-Public Use
  Company Number: None

PATIENT
  Age: 75 Year
  Sex: Male
  Weight: 72.5755 kg

DRUGS (1)
  1. AMOXICILLIN [Suspect]
     Dosage: 3 X DAILY
     Dates: start: 20110525

REACTIONS (2)
  - ERYTHEMA [None]
  - SKIN EXFOLIATION [None]
